FAERS Safety Report 9818239 (Version 1)
Quarter: 2014Q1

REPORT INFORMATION
  Report Type: Spontaneous
  Country: US (occurrence: None)
  Receive Date: 20140113
  Receipt Date: 20140113
  Transmission Date: 20141002
  Serious: Yes (Hospitalization)
  Sender: FDA-Public Use
  Company Number: None

PATIENT
  Age: 12 Year
  Sex: Female
  Weight: 55 kg

DRUGS (1)
  1. PEGASPARGASE [Suspect]
     Dates: end: 20131022

REACTIONS (5)
  - Pulmonary embolism [None]
  - Medical device complication [None]
  - Jugular vein thrombosis [None]
  - Subclavian vein thrombosis [None]
  - Axillary vein thrombosis [None]
